FAERS Safety Report 8453992-8 (Version None)
Quarter: 2012Q2

REPORT INFORMATION
  Report Type: 
  Country: None (occurrence: None)
  Receive Date: 20120620
  Receipt Date: 20120611
  Transmission Date: 20120825
  Serious: Yes (Hospitalization)
  Sender: FDA-Public Use
  Company Number: US-ELI_LILLY_AND_COMPANY-US201206004463

PATIENT
  Sex: Female
  Weight: 74.83 kg

DRUGS (3)
  1. ADCIRCA [Suspect]
  2. REMODULIN [Concomitant]
     Indication: PULMONARY ARTERIAL HYPERTENSION
     Dosage: 100 NG, UNK
     Route: 042
     Dates: start: 20051007
  3. COUMADIN [Concomitant]

REACTIONS (1)
  - DYSPNOEA [None]
